FAERS Safety Report 10292063 (Version 2)
Quarter: 2019Q1

REPORT INFORMATION
  Report Type: Spontaneous
  Country: FR (occurrence: FR)
  Receive Date: 20140710
  Receipt Date: 20190301
  Transmission Date: 20190417
  Serious: Yes (Hospitalization)
  Sender: FDA-Public Use
  Company Number: FR-ABBVIE-14K-056-1257124-00

PATIENT
  Age: 39 Year
  Sex: Female

DRUGS (7)
  1. HALDOL [Concomitant]
     Active Substance: HALOPERIDOL
     Indication: PRODUCT USED FOR UNKNOWN INDICATION
     Dates: start: 20140509, end: 20140516
  2. DEPAKOTE [Suspect]
     Active Substance: DIVALPROEX SODIUM
     Indication: MANIA
     Route: 048
     Dates: start: 20140516, end: 20140527
  3. VALIUM [Suspect]
     Active Substance: DIAZEPAM
     Indication: MANIA
     Route: 048
     Dates: start: 20140516, end: 20140527
  4. RISPERDAL [Suspect]
     Active Substance: RISPERIDONE
     Indication: MANIA
     Route: 048
     Dates: start: 20140505, end: 20140509
  5. RISPERDAL [Suspect]
     Active Substance: RISPERIDONE
     Route: 048
     Dates: start: 20140513, end: 20140522
  6. TERALITHE [Suspect]
     Active Substance: LITHIUM CARBONATE
     Indication: MANIA
     Route: 048
     Dates: start: 20140505, end: 20140527
  7. CLOPIXOL [Concomitant]
     Active Substance: ZUCLOPENTHIXOL
     Indication: PRODUCT USED FOR UNKNOWN INDICATION
     Dates: start: 20140502, end: 20140505

REACTIONS (1)
  - Drug reaction with eosinophilia and systemic symptoms [Recovering/Resolving]

NARRATIVE: CASE EVENT DATE: 20140526
